FAERS Safety Report 8425277-7 (Version None)
Quarter: 2012Q2

REPORT INFORMATION
  Report Type: 
  Country: None (occurrence: None)
  Receive Date: 20120611
  Receipt Date: 20120528
  Transmission Date: 20120825
  Serious: Yes (Hospitalization)
  Sender: FDA-Public Use
  Company Number: ES-JNJFOC-20120600077

PATIENT
  Age: 28 Year
  Sex: Female

DRUGS (6)
  1. TOPIRAMATE [Suspect]
     Indication: PRODUCT USED FOR UNKNOWN INDICATION
     Route: 048
  2. QUETIAPINE [Concomitant]
     Indication: PRODUCT USED FOR UNKNOWN INDICATION
     Route: 065
     Dates: start: 20100810
  3. TRAZODONE HCL [Concomitant]
     Indication: PRODUCT USED FOR UNKNOWN INDICATION
     Route: 065
     Dates: start: 20100810
  4. TOPIRAMATE [Suspect]
     Dosage: BETWEEN MAR AND MAY-2010
     Route: 048
     Dates: start: 20100101
  5. GABAPENTIN [Concomitant]
     Indication: PRODUCT USED FOR UNKNOWN INDICATION
     Route: 065
     Dates: start: 20100810
  6. TOPIRAMATE [Suspect]
     Route: 048
     Dates: start: 20090810

REACTIONS (2)
  - PSYCHOMOTOR HYPERACTIVITY [None]
  - AGGRESSION [None]
